FAERS Safety Report 13706938 (Version 1)
Quarter: 2017Q2

REPORT INFORMATION
  Report Type: Report from Study
  Country: ZA (occurrence: ZA)
  Receive Date: 20170630
  Receipt Date: 20170630
  Transmission Date: 20170830
  Serious: Yes (Death, Hospitalization, Other)
  Sender: FDA-Public Use
  Company Number: ZA-AMGEN-ZAFSL2017097568

PATIENT
  Age: 67 Year
  Sex: Female

DRUGS (1)
  1. ARANESP [Suspect]
     Active Substance: DARBEPOETIN ALFA
     Indication: NEPHROGENIC ANAEMIA
     Dosage: 40 MUG, QWK
     Route: 058
     Dates: start: 201703, end: 201706

REACTIONS (2)
  - Death [Fatal]
  - Device related infection [Unknown]

NARRATIVE: CASE EVENT DATE: 201706
